FAERS Safety Report 5149266-3 (Version None)
Quarter: 2006Q4

REPORT INFORMATION
  Report Type: 
  Country: None (occurrence: None)
  Receive Date: 20061113
  Receipt Date: 20060824
  Transmission Date: 20070319
  Serious: Yes (Hospitalization)
  Sender: FDA-Public Use
  Company Number: JP-JPN-A200603062

PATIENT
  Age: 23 Year
  Sex: Female

DRUGS (9)
  1. PAXIL [Suspect]
     Indication: DEPRESSION
     Dosage: 10MG THREE TIMES PER DAY
     Route: 048
     Dates: start: 20060418, end: 20060809
  2. PSYCHOTROPIC MEDICATIONS [Concomitant]
     Route: 065
  3. DEPAKENE [Concomitant]
     Indication: PERSONALITY DISORDER
     Route: 048
     Dates: start: 20060608
  4. LUVOX [Concomitant]
     Indication: DEPRESSION
     Route: 048
     Dates: start: 20060608
  5. RESLIN [Concomitant]
     Indication: DEPRESSION
     Dosage: 75MG PER DAY
     Route: 048
     Dates: start: 20060804
  6. LEVOTOMIN [Concomitant]
     Indication: PERSONALITY DISORDER
     Dosage: 15MG PER DAY
     Route: 048
     Dates: start: 20060718
  7. AMOBAN [Concomitant]
     Indication: INSOMNIA
     Dosage: 7.5MG PER DAY
     Route: 048
     Dates: start: 20060608
  8. NITRAZEPAM [Concomitant]
     Indication: INSOMNIA
     Route: 048
     Dates: start: 20060804
  9. LEXOTAN [Concomitant]
     Indication: DEPRESSION
     Route: 048
     Dates: start: 20060804

REACTIONS (3)
  - INTENTIONAL OVERDOSE [None]
  - LOSS OF CONSCIOUSNESS [None]
  - SUICIDE ATTEMPT [None]
